FAERS Safety Report 17351882 (Version 2)
Quarter: 2020Q1

REPORT INFORMATION
  Report Type: Spontaneous
  Country: PL (occurrence: PL)
  Receive Date: 20200130
  Receipt Date: 20200327
  Transmission Date: 20200409
  Serious: Yes (Life-Threatening, Other)
  Sender: FDA-Public Use
  Company Number: PL-AMGEN-POLSP2020013399

PATIENT

DRUGS (6)
  1. ARA-C [Suspect]
     Active Substance: CYTARABINE
     Indication: MALIGNANT LYMPHOID NEOPLASM
     Dosage: 0.4 GRAM PER SQUARE METRE, BID (ON DAYS 1 AND 2 (TOTAL DOSE 1.6 G/M^2)
     Route: 042
  2. ONDANSETRON [Concomitant]
     Active Substance: ONDANSETRON
     Indication: PROPHYLAXIS
     Dosage: 8 MILLIGRAM, BID
  3. MESNA. [Concomitant]
     Active Substance: MESNA
  4. CYCLOPHOSPHAMID [Suspect]
     Active Substance: CYCLOPHOSPHAMIDE
     Indication: MALIGNANT LYMPHOID NEOPLASM
     Dosage: 2 GRAM PER SQUARE METRE ON DAY 1 AND 2 (TOTAL DOSE 4 G/M^2)
     Route: 065
  5. FILGRASTIM [Suspect]
     Active Substance: FILGRASTIM
     Indication: HAEMATOPOIETIC STEM CELL MOBILISATION
     Dosage: UNK, (7-10 UG/KG) STARTED ON DAY 5 AND CONTINUED UNTIL LAST LEUKAPHERESIS
     Route: 065
  6. FILGRASTIM [Suspect]
     Active Substance: FILGRASTIM
     Dosage: 300 MICROGRAM, QD (STARTING FROM DAY 7 AFTER AUTOHSCT UNTIL ENGRAFTMENT )
     Route: 065

REACTIONS (21)
  - Thrombocytopenia [Unknown]
  - Atrial fibrillation [Unknown]
  - Venous thrombosis [Unknown]
  - Gamma-glutamyltransferase increased [Unknown]
  - Hypersensitivity [Unknown]
  - Nausea [Unknown]
  - Neutropenia [Unknown]
  - Dyspepsia [Unknown]
  - Vomiting [Unknown]
  - Disseminated intravascular coagulation [Unknown]
  - Disease progression [Unknown]
  - Mucosal inflammation [Unknown]
  - Hypertension [Unknown]
  - Bone pain [Unknown]
  - Diarrhoea [Unknown]
  - Activated partial thromboplastin time prolonged [Unknown]
  - Hypokalaemia [Unknown]
  - Hypotension [Unknown]
  - Upper respiratory tract infection [Unknown]
  - Febrile neutropenia [Unknown]
  - Infection [Unknown]
